FAERS Safety Report 10272307 (Version 1)
Quarter: 2014Q2

REPORT INFORMATION
  Report Type: Spontaneous
  Country: US (occurrence: None)
  Receive Date: 20140627
  Receipt Date: 20140627
  Transmission Date: 20141212
  Serious: No
  Sender: FDA-Public Use
  Company Number: None

PATIENT
  Age: 58 Year
  Sex: Female

DRUGS (1)
  1. HUMIRA 40MG ABBVIE [Suspect]
     Indication: CROHN^S DISEASE
     Dosage: 40MG?Q2W?SQ
     Dates: start: 201402, end: 20140620

REACTIONS (1)
  - Rash generalised [None]
